FAERS Safety Report 6339595-X (Version None)
Quarter: 2009Q3

REPORT INFORMATION
  Report Type: 
  Country: None (occurrence: None)
  Receive Date: 20090903
  Receipt Date: 20090831
  Transmission Date: 20100115
  Serious: Yes (Other)
  Sender: FDA-Public Use
  Company Number: ES-BRISTOL-MYERS SQUIBB COMPANY-14761233

PATIENT
  Age: 66 Year
  Sex: Female

DRUGS (4)
  1. AMANTADINE HCL [Suspect]
     Indication: PARKINSON'S DISEASE
  2. CARBIDOPA-LEVODOPA [Suspect]
     Indication: PARKINSON'S DISEASE
  3. ENTACAPONE [Suspect]
     Indication: PARKINSON'S DISEASE
  4. CABERGOLINE [Suspect]
     Indication: PARKINSON'S DISEASE

REACTIONS (1)
  - INAPPROPRIATE ANTIDIURETIC HORMONE SECRETION [None]
